FAERS Safety Report 13720062 (Version 1)
Quarter: 2017Q3

REPORT INFORMATION
  Report Type: Other
  Country: DE (occurrence: DE)
  Receive Date: 20170706
  Receipt Date: 20170706
  Transmission Date: 20171127
  Serious: No
  Sender: FDA-Public Use
  Company Number: DE-LUPIN PHARMACEUTICALS INC.-E2B_00005884

PATIENT
  Age: 63 Year
  Sex: Male
  Weight: 116 kg

DRUGS (3)
  1. ATORVASTATIN [Suspect]
     Active Substance: ATORVASTATIN
     Indication: HYPERLIPIDAEMIA
     Dosage: 10 MG,QD,
     Route: 048
     Dates: start: 20160110, end: 20160113
  2. SIMVASTATIN. [Suspect]
     Active Substance: SIMVASTATIN
     Indication: HYPERLIPIDAEMIA
     Dosage: 10 MG,QD,
     Route: 048
     Dates: start: 201510, end: 20160102
  3. EZETROL [Suspect]
     Active Substance: EZETIMIBE
     Indication: HYPERLIPIDAEMIA
     Dosage: 10 MG,QD,
     Route: 048
     Dates: start: 20160114, end: 20160120

REACTIONS (3)
  - Muscle spasms [Recovered/Resolved]
  - General physical health deterioration [Recovered/Resolved]
  - Myalgia [Recovered/Resolved]

NARRATIVE: CASE EVENT DATE: 2016
